FAERS Safety Report 7734009-7 (Version None)
Quarter: 2011Q3

REPORT INFORMATION
  Report Type: 
  Country: None (occurrence: None)
  Receive Date: 20110907
  Receipt Date: 20110826
  Transmission Date: 20111222
  Serious: Yes (Hospitalization, Other)
  Sender: FDA-Public Use
  Company Number: CA-ELI_LILLY_AND_COMPANY-CA201108008532

PATIENT
  Age: 80 Year
  Sex: Female

DRUGS (6)
  1. WARFARIN [Concomitant]
  2. HYDROCHLOROTHIAZIDE [Concomitant]
  3. LASIX [Concomitant]
  4. FORTEO [Suspect]
     Indication: OSTEOPOROSIS
     Dosage: 20 UG, QD
     Route: 058
     Dates: start: 20100204
  5. VITAMIN D [Concomitant]
  6. CALCIUM CARBONATE [Concomitant]

REACTIONS (4)
  - MALAISE [None]
  - DECREASED APPETITE [None]
  - ATRIAL FIBRILLATION [None]
  - OEDEMA PERIPHERAL [None]
